FAERS Safety Report 4956947-0 (Version None)
Quarter: 2006Q1

REPORT INFORMATION
  Report Type: 
  Country: None (occurrence: None)
  Receive Date: 20060329
  Receipt Date: 20060301
  Transmission Date: 20060701
  Serious: Yes (Life-Threatening, Hospitalization)
  Sender: FDA-Public Use
  Company Number: PHBS2006JP03358

PATIENT
  Age: 77 Year
  Sex: Male
  Weight: 66 kg

DRUGS (9)
  1. ASPIRIN [Concomitant]
     Dosage: 100 MG/D
     Route: 048
  2. PANALDINE [Concomitant]
     Dosage: 200 MG/D
     Route: 048
  3. OMEPRAZOLE [Concomitant]
     Dosage: 20 MG/D
     Route: 048
  4. MAGMITT KENEI [Concomitant]
     Dosage: 660 MG/D
     Route: 048
  5. FRANDOL [Concomitant]
     Dosage: 40 MG/D
     Route: 048
  6. ACTOS [Concomitant]
     Dosage: 15 MG/D
     Route: 048
  7. MYSLEE [Concomitant]
     Dosage: 5 MG/D
     Route: 048
  8. GLEEVEC [Suspect]
     Indication: CHRONIC MYELOID LEUKAEMIA
     Dosage: 400 MG, ONCE/SINGLE
     Route: 048
     Dates: start: 20060222, end: 20060222
  9. LASIX [Concomitant]
     Dosage: 20 MG/D
     Route: 048
     Dates: start: 20060222, end: 20060222

REACTIONS (8)
  - ANEURYSM [None]
  - CONVULSION [None]
  - FATIGUE [None]
  - HAEMATEMESIS [None]
  - HEAD DISCOMFORT [None]
  - MELAENA [None]
  - SMALL INTESTINAL HAEMORRHAGE [None]
  - SURGERY [None]
